FAERS Safety Report 21838608 (Version 1)
Quarter: 2023Q1

REPORT INFORMATION
  Report Type: Spontaneous
  Country: US (occurrence: None)
  Receive Date: 20230108
  Receipt Date: 20230108
  Transmission Date: 20230418
  Serious: Yes (Hospitalization)
  Sender: FDA-Public Use
  Company Number: None

PATIENT
  Age: 50 Year
  Sex: Female
  Weight: 54 kg

DRUGS (1)
  1. BUSPAR [Suspect]
     Active Substance: BUSPIRONE HYDROCHLORIDE
     Indication: Anxiety
     Dosage: OTHER QUANTITY : 1 TABLET(S);?FREQUENCY : TWICE A DAY;?
     Route: 048

REACTIONS (9)
  - COVID-19 [None]
  - Hypoaesthesia [None]
  - Hypoaesthesia [None]
  - Sensory disturbance [None]
  - Facial paralysis [None]
  - Muscle spasms [None]
  - Dyspnoea [None]
  - Visual impairment [None]
  - Photopsia [None]

NARRATIVE: CASE EVENT DATE: 20221024
